FAERS Safety Report 13721672 (Version 5)
Quarter: 2017Q4

REPORT INFORMATION
  Report Type: Report from Study
  Country: ES (occurrence: ES)
  Receive Date: 20170706
  Receipt Date: 20171126
  Transmission Date: 20180320
  Serious: Yes (Hospitalization)
  Sender: FDA-Public Use
  Company Number: ES-CELGENEUS-ESP-20170607609

PATIENT
  Age: 77 Year
  Sex: Male
  Weight: 72.7 kg

DRUGS (11)
  1. MAXIPIME [Concomitant]
     Active Substance: CEFEPIME HYDROCHLORIDE
     Indication: ANTIBIOTIC THERAPY
     Dosage: 6 GRAM
     Route: 041
     Dates: start: 20170614, end: 20170622
  2. TARGOCID [Concomitant]
     Active Substance: TEICOPLANIN
     Indication: ANTIBIOTIC THERAPY
     Dosage: 800 MILLIGRAM
     Route: 048
     Dates: start: 20170619, end: 20170624
  3. BALZAK [Concomitant]
     Active Substance: AMLODIPINE BESYLATE\OLMESARTAN MEDOXOMIL
     Indication: HYPOTENSION
     Route: 048
     Dates: start: 20170624
  4. TRANGOREX [Concomitant]
     Active Substance: AMIODARONE HYDROCHLORIDE
     Indication: ARRHYTHMIA
     Dosage: 200 MILLIGRAM
     Route: 065
     Dates: start: 20170624
  5. BELTRAX [Concomitant]
     Indication: HYPOTENSION
     Dosage: 40/10
     Route: 065
     Dates: start: 20170624
  6. POSACONAZOLE [Concomitant]
     Active Substance: POSACONAZOLE
     Indication: ANTIFUNGAL PROPHYLAXIS
     Dosage: 300 MILLIGRAM
     Route: 048
     Dates: start: 20170614
  7. COPONENT [Concomitant]
     Indication: HYPOTENSION
     Dosage: 150 MILLIGRAM
     Route: 048
     Dates: start: 20170614, end: 20170710
  8. EUTIROX [Concomitant]
     Active Substance: LEVOTHYROXINE SODIUM
     Indication: HYPOTHYROIDISM
     Dosage: 150 MILLIGRAM
     Route: 048
     Dates: start: 20170624
  9. AZACITIDINE. [Suspect]
     Active Substance: AZACITIDINE
     Indication: ACUTE MYELOID LEUKAEMIA
     Dosage: 75 MG/M2  (135.75MG)
     Route: 058
     Dates: start: 20170614, end: 20170620
  10. ALLORINA [Concomitant]
     Indication: BLOOD PRESSURE MANAGEMENT
     Dosage: 50 MILLILITER
     Route: 041
     Dates: start: 20170616, end: 20170621
  11. DUPHALAC [Concomitant]
     Active Substance: LACTULOSE
     Indication: CONSTIPATION
     Dosage: 45 MILLILITER
     Route: 048
     Dates: start: 20170620, end: 20170626

REACTIONS (2)
  - Abdominal wall abscess [Recovered/Resolved]
  - Skin ulcer [Recovered/Resolved]

NARRATIVE: CASE EVENT DATE: 20170620
